FAERS Safety Report 13717611 (Version 1)
Quarter: 2017Q3

REPORT INFORMATION
  Report Type: Report from Study
  Country: CA (occurrence: CA)
  Receive Date: 20170705
  Receipt Date: 20170705
  Transmission Date: 20171127
  Serious: Yes (Other)
  Sender: FDA-Public Use
  Company Number: CA-GLAXOSMITHKLINE-CA2017GSK102051

PATIENT
  Sex: Female

DRUGS (4)
  1. PREDNISONE. [Suspect]
     Active Substance: PREDNISONE
     Indication: PRODUCT USED FOR UNKNOWN INDICATION
     Dosage: 15 MG, 1D
  2. BREO ELLIPTA [Suspect]
     Active Substance: FLUTICASONE FUROATE\VILANTEROL TRIFENATATE
     Indication: PRODUCT USED FOR UNKNOWN INDICATION
     Dosage: UNK
     Dates: start: 201703
  3. VENTOLIN [Suspect]
     Active Substance: ALBUTEROL SULFATE
     Indication: PRODUCT USED FOR UNKNOWN INDICATION
     Dosage: UNK
  4. MEPOLIZUMAB [Suspect]
     Active Substance: MEPOLIZUMAB
     Indication: ASTHMA
     Dosage: 100 MG, Z
     Dates: start: 20160901

REACTIONS (19)
  - Dyspnoea [Unknown]
  - Drug dose omission [Unknown]
  - Nasopharyngitis [Unknown]
  - Hypertension [Unknown]
  - Concomitant disease aggravated [Unknown]
  - Apnoea [Unknown]
  - Oropharyngeal pain [Unknown]
  - Breath sounds abnormal [Unknown]
  - Cough [Unknown]
  - Eosinophilia [Unknown]
  - Malaise [Unknown]
  - Influenza [Not Recovered/Not Resolved]
  - Productive cough [Not Recovered/Not Resolved]
  - Chronic obstructive pulmonary disease [Unknown]
  - Asthma [Unknown]
  - Cushingoid [Unknown]
  - Pyrexia [Recovered/Resolved]
  - Chills [Unknown]
  - Drug ineffective [Unknown]
